FAERS Safety Report 18207654 (Version 1)
Quarter: 2020Q3

REPORT INFORMATION
  Report Type: Spontaneous
  Country: US (occurrence: US)
  Receive Date: 20200828
  Receipt Date: 20200828
  Transmission Date: 20201103
  Serious: No
  Sender: FDA-Public Use
  Company Number: US-PFIZER INC-2020333171

PATIENT
  Age: 84 Year
  Sex: Female
  Weight: 52.16 kg

DRUGS (4)
  1. CHANTIX [Suspect]
     Active Substance: VARENICLINE TARTRATE
     Indication: CHRONIC OBSTRUCTIVE PULMONARY DISEASE
     Dosage: UNK (UNKNOWN DOSE FREQUE WITH WATER (DID UP TO DAY 12 AND OTHER TWO SIDES COMPLETELY FILLED UP TO DA
     Dates: start: 201805
  2. CHANTIX [Suspect]
     Active Substance: VARENICLINE TARTRATE
     Indication: EMPHYSEMA
  3. CHANTIX [Suspect]
     Active Substance: VARENICLINE TARTRATE
     Indication: DYSPNOEA
  4. CHANTIX [Suspect]
     Active Substance: VARENICLINE TARTRATE
     Indication: SMOKING CESSATION THERAPY

REACTIONS (1)
  - Anaemia [Unknown]
